FAERS Safety Report 18055934 (Version 2)
Quarter: 2020Q3

REPORT INFORMATION
  Report Type: Spontaneous
  Country: US (occurrence: US)
  Receive Date: 20200722
  Receipt Date: 20200821
  Transmission Date: 20201103
  Serious: No
  Sender: FDA-Public Use
  Company Number: US-ACTELION-A-NJ2020-206736

PATIENT
  Sex: Female
  Weight: 39 kg

DRUGS (5)
  1. VELETRI [Suspect]
     Active Substance: EPOPROSTENOL
     Dosage: 13 NG/KG, PER MIN
     Route: 042
  2. VELETRI [Suspect]
     Active Substance: EPOPROSTENOL
     Dosage: 16 NG/KG, PER MIN
     Route: 042
  3. SILDENAFIL CITRATE. [Concomitant]
     Active Substance: SILDENAFIL CITRATE
  4. VELETRI [Suspect]
     Active Substance: EPOPROSTENOL
     Indication: PULMONARY ARTERIAL HYPERTENSION
     Dosage: 9 NG/KG, PER MIN
     Route: 042
  5. WARFARIN [Concomitant]
     Active Substance: WARFARIN

REACTIONS (3)
  - Depressed mood [Unknown]
  - Dyspnoea [Not Recovered/Not Resolved]
  - Pain in jaw [Unknown]
